FAERS Safety Report 23220194 (Version 1)
Quarter: 2023Q4

REPORT INFORMATION
  Report Type: Report from Study
  Country: ES (occurrence: ES)
  Receive Date: 20231123
  Receipt Date: 20231123
  Transmission Date: 20240110
  Serious: Yes (Life-Threatening, Other)
  Sender: FDA-Public Use
  Company Number: ES-AUROBINDO-AUR-APL-2023-074089

PATIENT

DRUGS (3)
  1. IRINOTECAN [Suspect]
     Active Substance: IRINOTECAN
     Indication: Neuroblastoma
     Dosage: 50 MILLIGRAM/SQ. METER, CYCLICAL
     Route: 042
  2. NAXITAMAB [Suspect]
     Active Substance: NAXITAMAB
     Indication: Neuroblastoma
     Dosage: 2.25 MILLIGRAM/KILOGRAM, ONCE A DAY (OVER 30?60 MIN AS TOLERATED, ON DAYS 2, 4, 9 AND 11)
     Route: 042
  3. TEMOZOLOMIDE [Suspect]
     Active Substance: TEMOZOLOMIDE
     Indication: Neuroblastoma
     Dosage: 150 MILLIGRAM/SQ. METER, ONCE A DAY (ON DAYS 1?5)
     Route: 048

REACTIONS (1)
  - Anaphylactic reaction [Unknown]
